FAERS Safety Report 8104551-8 (Version None)
Quarter: 2012Q1

REPORT INFORMATION
  Report Type: 
  Country: None (occurrence: None)
  Receive Date: 20120201
  Receipt Date: 20120130
  Transmission Date: 20120608
  Serious: Yes (Hospitalization)
  Sender: FDA-Public Use
  Company Number: FR-MERCK-1201FRA00109

PATIENT
  Age: 60 Year
  Sex: Female

DRUGS (10)
  1. QUETIAPINE FUMARATE [Suspect]
     Indication: DEPRESSION
     Route: 048
     Dates: start: 20111201, end: 20111202
  2. DULOXETIME HYDROCHLORIDE [Suspect]
     Indication: DEPRESSION
     Route: 048
     Dates: start: 20111107, end: 20111208
  3. NOROXIN [Suspect]
     Indication: CYSTITIS BACTERIAL
     Route: 048
     Dates: start: 20111122, end: 20111130
  4. PRAZEPAM [Concomitant]
     Route: 065
  5. RABEPRAZOLE SODIUM [Concomitant]
     Route: 065
  6. VERAPAMIL HYDROCHLORIDE [Concomitant]
     Route: 065
  7. PERINDOPRIL ERBUMINE [Concomitant]
     Route: 048
  8. PREDNISONE [Concomitant]
     Indication: SYSTEMIC LUPUS ERYTHEMATOSUS
     Route: 048
  9. ASPIRIN LYSINE [Concomitant]
     Route: 065
  10. ZOCOR [Concomitant]
     Route: 065

REACTIONS (2)
  - PRURITUS [None]
  - DRUG ERUPTION [None]
